FAERS Safety Report 7222979-5 (Version None)
Quarter: 2011Q1

REPORT INFORMATION
  Report Type: 
  Country: None (occurrence: None)
  Receive Date: 20110112
  Receipt Date: 20110107
  Transmission Date: 20110831
  Serious: Yes (Other)
  Sender: FDA-Public Use
  Company Number: US-AMGEN-USASP2011001972

PATIENT

DRUGS (3)
  1. IMMUNOGLOBULINS [Concomitant]
  2. DANAZOL [Concomitant]
  3. NPLATE [Suspect]
     Indication: IDIOPATHIC THROMBOCYTOPENIC PURPURA
     Dates: start: 20101117, end: 20101211

REACTIONS (1)
  - THERAPEUTIC RESPONSE DECREASED [None]
